FAERS Safety Report 5228285-2 (Version None)
Quarter: 2007Q1

REPORT INFORMATION
  Report Type: 
  Country: None (occurrence: None)
  Receive Date: 20070205
  Receipt Date: 20070124
  Transmission Date: 20070707
  Serious: Yes (Hospitalization, Other)
  Sender: FDA-Public Use
  Company Number: PHRM2007FR00645

PATIENT
  Age: 62 Year
  Sex: Female

DRUGS (6)
  1. TAREG [Suspect]
  2. IDARAC [Suspect]
     Dosage: 200 MG, QID
     Route: 048
  3. PREVISCAN [Suspect]
     Dosage: 15 MG, QD
     Route: 048
  4. ENDOTELON [Suspect]
     Dosage: 150 MG, BID
     Route: 048
  5. OROCAL D3 [Suspect]
     Dosage: 1 DF, QD
     Route: 048
  6. DIDRONEL ^PROCTER + GAMBLE^ [Suspect]
     Dosage: 400 MG, QD
     Route: 048

REACTIONS (6)
  - ACTIVATED PROTEIN C RESISTANCE [None]
  - COMPRESSION STOCKINGS APPLICATION [None]
  - HYPERTENSION [None]
  - PULMONARY EMBOLISM [None]
  - VARICOSE VEIN [None]
  - VENOUS THROMBOSIS LIMB [None]
